FAERS Safety Report 8308869-5 (Version None)
Quarter: 2012Q2

REPORT INFORMATION
  Report Type: 
  Country: None (occurrence: None)
  Receive Date: 20120424
  Receipt Date: 20120417
  Transmission Date: 20120825
  Serious: No
  Sender: FDA-Public Use
  Company Number: US-PFIZER INC-2012095478

PATIENT
  Sex: Male

DRUGS (1)
  1. SUTENT [Suspect]
     Indication: METASTATIC RENAL CELL CARCINOMA
     Dosage: 50 MG, DAILY FOR 4 WEEKS WITH 2 WEEKS OFF
     Route: 048
     Dates: start: 20110714

REACTIONS (5)
  - VISION BLURRED [None]
  - ABDOMINAL PAIN UPPER [None]
  - FACE OEDEMA [None]
  - FLANK PAIN [None]
  - BLOOD URINE PRESENT [None]
